FAERS Safety Report 20937623 (Version 3)
Quarter: 2022Q2

REPORT INFORMATION
  Report Type: Report from Study
  Country: KR (occurrence: KR)
  Receive Date: 20220609
  Receipt Date: 20220621
  Transmission Date: 20220721
  Serious: Yes (Other)
  Sender: FDA-Public Use
  Company Number: KR-TAKEDA-2022TUS037855

PATIENT
  Sex: Male

DRUGS (20)
  1. BRIGATINIB [Suspect]
     Active Substance: BRIGATINIB
     Indication: Non-small cell lung cancer
     Dosage: 90 MILLIGRAM, QD
     Route: 065
     Dates: start: 20201217, end: 20201222
  2. BRIGATINIB [Suspect]
     Active Substance: BRIGATINIB
     Dosage: 180 MILLIGRAM, QD
     Route: 065
     Dates: start: 20201223, end: 20210527
  3. PREDNISOLONE [Concomitant]
     Active Substance: PREDNISOLONE
     Indication: Chronic gastritis
     Dosage: UNK
     Route: 048
     Dates: start: 20201216
  4. THEOBROMINE [Concomitant]
     Active Substance: THEOBROMINE
     Indication: Rhinitis allergic
     Dosage: 600 MILLIGRAM
     Route: 048
     Dates: start: 20201216
  5. UMCKAMIN [Concomitant]
     Indication: Bronchitis chronic
     Dosage: UNK
     Route: 048
     Dates: start: 20201216
  6. LANSOPRAZOLE [Concomitant]
     Active Substance: LANSOPRAZOLE
     Indication: Chronic gastritis
     Dosage: 15 MILLIGRAM
     Route: 048
     Dates: start: 20201216
  7. HERBALS [Concomitant]
     Active Substance: HERBALS
     Indication: Chronic gastritis
     Dosage: UNK
     Route: 048
     Dates: start: 20201216, end: 20210511
  8. SYNATURA [Concomitant]
     Indication: Bronchitis chronic
     Dosage: UNK
     Route: 048
     Dates: start: 20201216
  9. FEROBA YOU [Concomitant]
     Indication: Anaemia
     Dosage: UNK
     Route: 048
     Dates: start: 20201216
  10. RUPAFIN [Concomitant]
     Active Substance: RUPATADINE FUMARATE
     Indication: Rhinitis allergic
     Dosage: UNK
     Route: 048
     Dates: start: 20201223, end: 20210511
  11. ACETYLCYSTEINE [Concomitant]
     Active Substance: ACETYLCYSTEINE
     Indication: Bronchitis chronic
     Dosage: 400 MILLIGRAM
     Route: 048
     Dates: start: 20201223
  12. URSODIOL [Concomitant]
     Active Substance: URSODIOL
     Indication: Aspartate aminotransferase increased
     Dosage: 200 MILLIGRAM
     Route: 048
     Dates: start: 20210120
  13. NALOXONE HYDROCHLORIDE\OXYCODONE HYDROCHLORIDE [Concomitant]
     Active Substance: NALOXONE HYDROCHLORIDE\OXYCODONE HYDROCHLORIDE
     Indication: Cancer pain
     Dosage: UNK
     Route: 048
     Dates: start: 20210120, end: 20210511
  14. RAMNOS [Concomitant]
     Indication: Diarrhoea
     Dosage: 750 MILLIGRAM
     Route: 048
     Dates: start: 20210330, end: 20210524
  15. SHUMACTON [Concomitant]
     Indication: Diarrhoea
     Dosage: UNK
     Route: 048
     Dates: start: 20210330, end: 20210419
  16. LASIX [Concomitant]
     Active Substance: FUROSEMIDE
     Indication: Face oedema
     Dosage: UNK
     Route: 048
     Dates: start: 20210317
  17. Acelex [Concomitant]
     Indication: Arthritis bacterial
     Dosage: 2 MILLIGRAM
     Route: 048
     Dates: start: 20210304, end: 20210429
  18. Acelex [Concomitant]
     Dosage: 2 MILLIGRAM
     Route: 048
     Dates: start: 20210430
  19. JOINS [Concomitant]
     Indication: Arthritis bacterial
     Dosage: 400 MILLIGRAM
     Route: 048
     Dates: start: 20210304, end: 20210429
  20. STILLEN [Concomitant]
     Indication: Chronic gastritis
     Dosage: UNK
     Route: 048
     Dates: start: 20210304, end: 20210502

REACTIONS (1)
  - Pericardial effusion [Recovering/Resolving]

NARRATIVE: CASE EVENT DATE: 20210506
